FAERS Safety Report 25368696 (Version 2)
Quarter: 2025Q3

REPORT INFORMATION
  Report Type: Spontaneous
  Country: US (occurrence: US)
  Receive Date: 20250528
  Receipt Date: 20250731
  Transmission Date: 20251021
  Serious: Yes (Hospitalization)
  Sender: EISAI
  Company Number: US-Eisai-EC-2025-189632

PATIENT
  Age: 52 Year
  Sex: Male
  Weight: 63.8 kg

DRUGS (4)
  1. LENVATINIB [Suspect]
     Active Substance: LENVATINIB
     Indication: Renal cell carcinoma stage IV
     Dosage: UNKNOWN DOSE AND FREQUENCY
     Dates: start: 20230804, end: 20240403
  2. LENVATINIB [Suspect]
     Active Substance: LENVATINIB
     Indication: Metastases to lung
  3. PEMBROLIZUMAB [Suspect]
     Active Substance: PEMBROLIZUMAB
     Indication: Renal cell carcinoma stage IV
     Dates: start: 20230830, end: 20240306
  4. PEMBROLIZUMAB [Suspect]
     Active Substance: PEMBROLIZUMAB
     Indication: Metastases to lung

REACTIONS (1)
  - C3 glomerulopathy [Not Recovered/Not Resolved]

NARRATIVE: CASE EVENT DATE: 20240103
